FAERS Safety Report 9885007 (Version 4)
Quarter: 2014Q2

REPORT INFORMATION
  Report Type: Spontaneous
  Country: US (occurrence: US)
  Receive Date: 20140210
  Receipt Date: 20140418
  Transmission Date: 20141212
  Serious: Yes (Death, Life-Threatening, Hospitalization, Other)
  Sender: FDA-Public Use
  Company Number: US-JNJFOC-20140204022

PATIENT
  Age: 40 Year
  Sex: Female
  Weight: 92.99 kg

DRUGS (17)
  1. XARELTO [Suspect]
     Indication: PULMONARY EMBOLISM
     Route: 048
     Dates: start: 20131009
  2. XARELTO [Suspect]
     Indication: EMBOLISM VENOUS
     Route: 048
     Dates: start: 20131009
  3. TAMIFLU [Concomitant]
     Indication: INFLUENZA
     Route: 065
     Dates: start: 20140127
  4. SOTALOL [Concomitant]
     Indication: ATRIAL FIBRILLATION
     Route: 065
     Dates: start: 20140127
  5. PREDNISONE [Concomitant]
     Route: 065
  6. BETAPACE [Concomitant]
     Route: 065
  7. XANAX [Concomitant]
     Route: 065
  8. NEXIUM [Concomitant]
     Route: 065
  9. PERCOCET [Concomitant]
     Route: 065
  10. PREDNISONE [Concomitant]
     Route: 065
  11. LEXAPRO [Concomitant]
     Route: 065
  12. MUCINEX [Concomitant]
     Route: 065
  13. XOPENEX INHALER [Concomitant]
     Route: 055
  14. CITALOPRAM [Concomitant]
     Route: 065
  15. ALPRAZOLAM [Concomitant]
     Indication: ANXIETY
     Route: 065
  16. MOTRIN [Concomitant]
     Route: 065
  17. GUAIFENESIN [Concomitant]
     Route: 065

REACTIONS (11)
  - Deep vein thrombosis [Fatal]
  - Renal failure acute [Fatal]
  - Pneumonia influenzal [Fatal]
  - Hypotension [Fatal]
  - Hyperglycaemia [Unknown]
  - Syncope [Unknown]
  - Fibrin D dimer increased [Unknown]
  - Asthma [Unknown]
  - Treatment noncompliance [Unknown]
  - Drug dose omission [Unknown]
  - Inappropriate schedule of drug administration [Unknown]
